FAERS Safety Report 18512094 (Version 1)
Quarter: 2020Q4

REPORT INFORMATION
  Report Type: Spontaneous
  Country: US (occurrence: US)
  Receive Date: 20201117
  Receipt Date: 20201117
  Transmission Date: 20210114
  Serious: Yes (Death, Other)
  Sender: FDA-Public Use
  Company Number: US-PURDUE-USA-2020-0170961

PATIENT
  Sex: Male

DRUGS (1)
  1. OXYCONTIN [Suspect]
     Active Substance: OXYCODONE HYDROCHLORIDE
     Indication: PRODUCT USED FOR UNKNOWN INDICATION
     Route: 048

REACTIONS (8)
  - Death [Fatal]
  - Drug dependence [Unknown]
  - Depression [Unknown]
  - Drug withdrawal syndrome [Unknown]
  - Self esteem decreased [Unknown]
  - Overdose [Unknown]
  - General physical health deterioration [Unknown]
  - Loss of personal independence in daily activities [Unknown]
